FAERS Safety Report 14838985 (Version 3)
Quarter: 2018Q2

REPORT INFORMATION
  Report Type: Spontaneous
  Country: US (occurrence: US)
  Receive Date: 20180502
  Receipt Date: 20180515
  Transmission Date: 20180711
  Serious: Yes (Other)
  Sender: FDA-Public Use
  Company Number: US-PFIZER INC-2017343766

PATIENT
  Age: 15 Year
  Sex: Male

DRUGS (3)
  1. GENOTROPIN [Suspect]
     Active Substance: SOMATROPIN
     Dosage: UNK
  2. GENOTROPIN [Suspect]
     Active Substance: SOMATROPIN
     Indication: SMALL FOR DATES BABY
     Dosage: 3.5 MG, UNK
  3. GENOTROPIN [Suspect]
     Active Substance: SOMATROPIN
     Dosage: 3.8 MG, 1X/DAY(NIGHTLY)
     Route: 058

REACTIONS (9)
  - Underdose [Unknown]
  - Emotional disorder [Unknown]
  - Wrong technique in device usage process [Recovered/Resolved]
  - Drug prescribing error [Unknown]
  - Weight decreased [Unknown]
  - Abnormal behaviour [Unknown]
  - Drug dose omission [Recovered/Resolved]
  - Kidney infection [Unknown]
  - Device issue [Unknown]

NARRATIVE: CASE EVENT DATE: 2017
